FAERS Safety Report 9252682 (Version 3)
Quarter: 2013Q2

REPORT INFORMATION
  Report Type: Spontaneous
  Country: JP (occurrence: JP)
  Receive Date: 20130424
  Receipt Date: 20130523
  Transmission Date: 20140414
  Serious: Yes (Hospitalization)
  Sender: FDA-Public Use
  Company Number: JP-GLAXOSMITHKLINE-B0885002A

PATIENT
  Age: 71 Year
  Sex: Female
  Weight: 59 kg

DRUGS (6)
  1. VALTREX [Suspect]
     Indication: HERPES ZOSTER
     Dosage: 1000MG THREE TIMES PER DAY
     Route: 048
     Dates: start: 20130407, end: 20130412
  2. AMLODIPINE [Concomitant]
     Indication: HYPERTENSION
     Dosage: 5MG TWICE PER DAY
     Route: 048
  3. ACINON [Concomitant]
     Indication: GASTRIC ULCER
     Dosage: 150MG TWICE PER DAY
     Route: 048
  4. SEROQUEL [Concomitant]
     Indication: INSOMNIA
     Dosage: 50MG PER DAY
     Route: 048
  5. DESYREL [Concomitant]
     Indication: INSOMNIA
     Dosage: 25MG TWICE PER DAY
     Route: 048
  6. METHYCOBAL [Concomitant]
     Indication: HERPES ZOSTER INFECTION NEUROLOGICAL
     Dosage: 200MCG THREE TIMES PER DAY
     Route: 048
     Dates: start: 20130410, end: 20130412

REACTIONS (5)
  - Renal failure acute [Recovering/Resolving]
  - Tubulointerstitial nephritis [Recovering/Resolving]
  - Renal tubular disorder [Recovering/Resolving]
  - Renal disorder [Recovering/Resolving]
  - Dizziness [Unknown]
